FAERS Safety Report 8275829-2 (Version None)
Quarter: 2012Q2

REPORT INFORMATION
  Report Type: 
  Country: None (occurrence: None)
  Receive Date: 20120410
  Receipt Date: 20120410
  Transmission Date: 20120825
  Serious: Yes (Hospitalization)
  Sender: FDA-Public Use
  Company Number: None

PATIENT
  Age: 88 Year
  Sex: Male
  Weight: 86.4 kg

DRUGS (2)
  1. CIPROFLOXACIN HYDROCHLORIDE [Suspect]
     Indication: POSTOPERATIVE CARE
     Dates: start: 20120202, end: 20120206
  2. CIPROFLOXACIN HYDROCHLORIDE [Suspect]
     Indication: TRANSURETHRAL PROSTATECTOMY
     Dates: start: 20120202, end: 20120206

REACTIONS (1)
  - TUBULOINTERSTITIAL NEPHRITIS [None]
